FAERS Safety Report 18995136 (Version 2)
Quarter: 2021Q2

REPORT INFORMATION
  Report Type: Report from Study
  Country: FR (occurrence: FR)
  Receive Date: 20210311
  Receipt Date: 20210616
  Transmission Date: 20210717
  Serious: Yes (Disabling, Other)
  Sender: FDA-Public Use
  Company Number: FR-AMGEN-FRACT2021035474

PATIENT
  Age: 65 Year
  Sex: Female
  Weight: 120 kg

DRUGS (23)
  1. 5 FU [Suspect]
     Active Substance: FLUOROURACIL
     Indication: METASTASES TO LIVER
  2. LEVOFOLINATE [LEVOFOLINIC ACID] [Suspect]
     Active Substance: LEVOLEUCOVORIN
     Indication: METASTASES TO LUNG
     Dosage: 400 MILLIGRAM
     Route: 042
     Dates: end: 20210208
  3. LEVOFOLINATE [LEVOFOLINIC ACID] [Suspect]
     Active Substance: LEVOLEUCOVORIN
     Indication: METASTASES TO LIVER
  4. CAMPTO [Suspect]
     Active Substance: IRINOTECAN
     Indication: RECTOSIGMOID CANCER
  5. OXALIPLATINE [Suspect]
     Active Substance: OXALIPLATIN
     Indication: METASTASES TO LIVER
     Dosage: 115 MILLIGRAM
     Route: 042
     Dates: end: 20210208
  6. PANITUMUMAB [Suspect]
     Active Substance: PANITUMUMAB
     Indication: COLORECTAL CANCER
     Dosage: UNK
     Route: 042
     Dates: start: 20201102
  7. 5 FU [Suspect]
     Active Substance: FLUOROURACIL
     Indication: RECTOSIGMOID CANCER
  8. LEVOFOLINATE [LEVOFOLINIC ACID] [Suspect]
     Active Substance: LEVOLEUCOVORIN
     Indication: COLORECTAL CANCER
     Dosage: UNK
     Route: 042
     Dates: start: 20201102
  9. ONDANSETRON [Concomitant]
     Active Substance: ONDANSETRON
     Indication: PROPHYLACTIC CHEMOTHERAPY
     Dosage: 16 MILLIGRAM
     Route: 048
     Dates: start: 20201122
  10. 5 FU [Suspect]
     Active Substance: FLUOROURACIL
     Indication: COLORECTAL CANCER
     Dosage: UNK
     Route: 042
     Dates: start: 20201102
  11. OXALIPLATINE [Suspect]
     Active Substance: OXALIPLATIN
     Indication: METASTASES TO LIVER
  12. OXALIPLATINE [Suspect]
     Active Substance: OXALIPLATIN
     Indication: RECTOSIGMOID CANCER
  13. PREDNISOLONE. [Concomitant]
     Active Substance: PREDNISOLONE
     Indication: PROPHYLACTIC CHEMOTHERAPY
     Dosage: 60 MILLIGRAM
     Route: 048
     Dates: start: 20201102
  14. PANITUMUMAB [Suspect]
     Active Substance: PANITUMUMAB
     Indication: METASTASES TO LIVER
  15. 5 FU [Suspect]
     Active Substance: FLUOROURACIL
     Indication: METASTASES TO LUNG
     Dosage: 4850 MILLIGRAM
     Route: 042
     Dates: end: 20210208
  16. CAMPTO [Suspect]
     Active Substance: IRINOTECAN
     Indication: COLORECTAL CANCER
     Dosage: UNK
     Route: 042
     Dates: start: 20201102
  17. CAMPTO [Suspect]
     Active Substance: IRINOTECAN
     Indication: METASTASES TO LIVER
  18. OXALIPLATINE [Suspect]
     Active Substance: OXALIPLATIN
     Indication: COLORECTAL CANCER
     Dosage: UNK
     Route: 042
     Dates: start: 20201102
  19. APREPITANT. [Concomitant]
     Active Substance: APREPITANT
     Indication: PROPHYLACTIC CHEMOTHERAPY
     Dosage: 80 MILLIGRAM
     Route: 048
     Dates: start: 20201020
  20. PANITUMUMAB [Suspect]
     Active Substance: PANITUMUMAB
     Indication: METASTASES TO LUNG
     Dosage: 580 MILLIGRAM
     Route: 042
     Dates: end: 20210208
  21. PANITUMUMAB [Suspect]
     Active Substance: PANITUMUMAB
     Indication: RECTOSIGMOID CANCER
  22. CAMPTO [Suspect]
     Active Substance: IRINOTECAN
     Indication: METASTASES TO LUNG
     Dosage: 240 MILLIGRAM
     Route: 042
     Dates: end: 20201228
  23. LEVOFOLINATE [LEVOFOLINIC ACID] [Suspect]
     Active Substance: LEVOLEUCOVORIN
     Indication: RECTOSIGMOID CANCER

REACTIONS (2)
  - Large intestine perforation [Recovered/Resolved with Sequelae]
  - Peritonitis [Recovered/Resolved with Sequelae]

NARRATIVE: CASE EVENT DATE: 20210219
